FAERS Safety Report 25447011 (Version 1)
Quarter: 2025Q2

REPORT INFORMATION
  Report Type: Report from Study
  Country: US (occurrence: US)
  Receive Date: 20250617
  Receipt Date: 20250617
  Transmission Date: 20250716
  Serious: Yes (Other)
  Sender: ABBVIE
  Company Number: US-ABBVIE-6257935

PATIENT
  Age: 71 Year
  Sex: Male

DRUGS (1)
  1. HUMIRA [Suspect]
     Active Substance: ADALIMUMAB
     Indication: Product used for unknown indication
     Route: 058
     Dates: start: 20170425

REACTIONS (9)
  - Osteoarthritis [Recovering/Resolving]
  - Patient-device incompatibility [Recovering/Resolving]
  - Pyrexia [Recovered/Resolved]
  - Swelling [Recovered/Resolved]
  - Blue toe syndrome [Recovered/Resolved]
  - Musculoskeletal disorder [Not Recovered/Not Resolved]
  - Rotator cuff syndrome [Unknown]
  - Device related infection [Recovering/Resolving]
  - Arthritis [Recovering/Resolving]

NARRATIVE: CASE EVENT DATE: 20250101
